FAERS Safety Report 6936429-7 (Version None)
Quarter: 2010Q3

REPORT INFORMATION
  Report Type: 
  Country: None (occurrence: None)
  Receive Date: 20100818
  Receipt Date: 20100802
  Transmission Date: 20110219
  Serious: Yes (Death)
  Sender: FDA-Public Use
  Company Number: 2010003212

PATIENT
  Age: 64 Year
  Sex: Male

DRUGS (8)
  1. ERLOTINIB HYDROCHLORIDE [Suspect]
     Indication: LARYNGEAL CANCER
     Dosage: 150 MG, QD, ORAL
     Route: 048
     Dates: start: 20100629, end: 20100731
  2. CISPLATIN [Suspect]
     Indication: LARYNGEAL CANCER
     Dosage: 100 MG/M2, Q3W, INTRAVENOUS
     Route: 042
     Dates: start: 20100708
  3. SYNTHROID [Concomitant]
  4. PERCOCET [Concomitant]
  5. EMEND [Concomitant]
  6. ZOFRAN [Concomitant]
  7. DECADRON [Concomitant]
  8. ATIVAN [Concomitant]

REACTIONS (8)
  - CHEST PAIN [None]
  - CONVULSION [None]
  - DYSPNOEA [None]
  - FALL [None]
  - GENERAL PHYSICAL HEALTH DETERIORATION [None]
  - HAEMATOCRIT DECREASED [None]
  - HAEMOGLOBIN DECREASED [None]
  - RESUSCITATION [None]
